FAERS Safety Report 4542833-7 (Version None)
Quarter: 2004Q4

REPORT INFORMATION
  Report Type: 
  Country: None (occurrence: None)
  Receive Date: 20041229
  Receipt Date: 20041217
  Transmission Date: 20050328
  Serious: Yes (Death)
  Sender: FDA-Public Use
  Company Number: US-2004-029508

PATIENT
  Age: 46 Year
  Sex: Male
  Weight: 92.5 kg

DRUGS (8)
  1. BETASERON [Suspect]
     Indication: SECONDARY PROGRESSIVE MULTIPLE SCLEROSIS
     Dosage: 8 MIU, EVERY 2D, SUBCUTANEOUS
     Route: 058
     Dates: start: 19960101, end: 20040720
  2. NAPROXEN SODIUM (NAPRELAN) (NAPROXEN SODIUM) [Concomitant]
  3. BACLOFEN [Concomitant]
  4. CYTOXAN [Concomitant]
  5. SOLU-MEDROL [Concomitant]
  6. TIZANIDINE (TIZANIDINE) [Concomitant]
  7. ROLAIDS [Concomitant]
  8. ASPIRIN [Concomitant]

REACTIONS (5)
  - CARDIAC FAILURE [None]
  - CARDIOVASCULAR DISORDER [None]
  - CORONARY ARTERY DISEASE [None]
  - HYPERTROPHIC CARDIOMYOPATHY [None]
  - MYOCARDIAL ISCHAEMIA [None]
